FAERS Safety Report 7982028-8 (Version None)
Quarter: 2011Q4

REPORT INFORMATION
  Report Type: 
  Country: None (occurrence: None)
  Receive Date: 20111215
  Receipt Date: 20111209
  Transmission Date: 20120403
  Serious: Yes (Congenital Anomaly, Other)
  Sender: FDA-Public Use
  Company Number: US-PFIZER INC-2011195278

PATIENT
  Sex: Male

DRUGS (2)
  1. ZOLOFT [Suspect]
     Dosage: 100 MG, UNK
     Route: 064
  2. ZOLOFT [Suspect]
     Dosage: 50 MG, UNK
     Route: 064

REACTIONS (8)
  - TRICUSPID VALVE INCOMPETENCE [None]
  - COARCTATION OF THE AORTA [None]
  - MATERNAL DRUGS AFFECTING FOETUS [None]
  - MATERNAL EXPOSURE TIMING UNSPECIFIED [None]
  - CARDIAC FAILURE CONGESTIVE [None]
  - RIGHT VENTRICULAR HYPERTROPHY [None]
  - CONGENITAL PULMONARY ARTERY ANOMALY [None]
  - HYPOPLASTIC LEFT HEART SYNDROME [None]
